FAERS Safety Report 4439629-3 (Version None)
Quarter: 2004Q3

REPORT INFORMATION
  Report Type: 
  Country: None (occurrence: None)
  Receive Date: 20040831
  Receipt Date: 20040831
  Transmission Date: 20050211
  Serious: Yes (Hospitalization)
  Sender: FDA-Public Use
  Company Number: None

PATIENT
  Age: 42 Year
  Sex: Female
  Weight: 47.6277 kg

DRUGS (19)
  1. ABILIFY [Suspect]
     Indication: MIGRAINE
     Dosage: UNCERTAIN
     Dates: start: 20040722, end: 20040724
  2. PROGRAF [Concomitant]
  3. PREDNISONE [Concomitant]
  4. ACCUPRIL [Concomitant]
  5. ACTIQ [Concomitant]
  6. ACYCLOVIR [Concomitant]
  7. AMBIEN [Concomitant]
  8. IMITREX [Concomitant]
  9. LOESTRIN 1.5/30 [Concomitant]
  10. M.V.I. [Concomitant]
  11. MYLANTA [Concomitant]
  12. NEURONTIN [Concomitant]
  13. PREVACID [Concomitant]
  14. RISEDRONATE [Concomitant]
  15. ROBITUSSIN WITH CODEINE [Concomitant]
  16. SLO-MAG [Concomitant]
  17. XANAX [Concomitant]
  18. ZANTAC [Concomitant]
  19. ZOLOFT [Concomitant]

REACTIONS (3)
  - KIDNEY TRANSPLANT REJECTION [None]
  - OEDEMA PERIPHERAL [None]
  - RENAL FAILURE [None]
